FAERS Safety Report 12557240 (Version 1)
Quarter: 2016Q3

REPORT INFORMATION
  Report Type: Spontaneous
  Country: US (occurrence: US)
  Receive Date: 20160714
  Receipt Date: 20160714
  Transmission Date: 20161109
  Serious: No
  Sender: FDA-Public Use
  Company Number: US-BAYER-2016-134753

PATIENT
  Age: 70 Year
  Sex: Male
  Weight: 86.17 kg

DRUGS (3)
  1. ALEVE [Suspect]
     Active Substance: NAPROXEN SODIUM
     Indication: PAIN IN EXTREMITY
     Dosage: 1 DF, UNK
     Route: 048
     Dates: start: 20160707
  2. ALEVE [Suspect]
     Active Substance: NAPROXEN SODIUM
     Indication: ARTHRALGIA
  3. ALEVE [Suspect]
     Active Substance: NAPROXEN SODIUM
     Indication: ANALGESIC THERAPY
     Dosage: 3 DF, UNK; TAKING THE FIRST CAPLET AND WAITING 8 HOURS BEFORE TAKING THE 2ND, 3RD 4 1/2 HOUR LATER
     Route: 048
     Dates: start: 20160707

REACTIONS (2)
  - Drug effect delayed [None]
  - Drug effect incomplete [None]
